FAERS Safety Report 10456233 (Version 2)
Quarter: 2018Q3

REPORT INFORMATION
  Report Type: Spontaneous
  Country: FR (occurrence: FR)
  Receive Date: 20140916
  Receipt Date: 20180914
  Transmission Date: 20181010
  Serious: Yes (Hospitalization, Other)
  Sender: FDA-Public Use
  Company Number: FR-RANBAXY-2014R1-85446

PATIENT
  Age: 5 Year
  Sex: Female

DRUGS (2)
  1. CEFPODOXIME [Suspect]
     Active Substance: CEFPODOXIME
     Indication: PRODUCT USED FOR UNKNOWN INDICATION
     Dosage: DOSE WAS REPEATED EVERY DAYS FOR 7 DAYS
     Route: 048
  2. CEFPODOXIME [Suspect]
     Active Substance: CEFPODOXIME
     Dosage: UNK, DAILY
     Route: 048

REACTIONS (3)
  - Laryngeal oedema [Unknown]
  - Urticaria [Unknown]
  - Anaphylactic reaction [Unknown]
